FAERS Safety Report 9063574 (Version 1)
Quarter: 2013Q1

REPORT INFORMATION
  Report Type: Report from Study
  Country: US (occurrence: US)
  Receive Date: 20130131
  Receipt Date: 20130131
  Transmission Date: 20140127
  Serious: Yes (Other)
  Sender: FDA-Public Use
  Company Number: US-ABBOTT-12P-163-1002283-00

PATIENT
  Sex: Female
  Weight: 64.47 kg

DRUGS (9)
  1. HUMIRA [Suspect]
     Indication: RHEUMATOID ARTHRITIS
     Dosage: 40MG/0.8ML EVERY OTHER WEEK
     Route: 058
     Dates: start: 200902
  2. HCQ [Concomitant]
     Indication: PRODUCT USED FOR UNKNOWN INDICATION
  3. LEFLUNOMIDE [Concomitant]
     Indication: IMMUNOSUPPRESSANT DRUG THERAPY
     Dosage: 20 MG/DAY
     Dates: start: 19981216, end: 2012
  4. PREDNISONE [Concomitant]
     Indication: PRODUCT USED FOR UNKNOWN INDICATION
     Dosage: 5 MG/DAY
  5. CARDIZEM [Concomitant]
     Indication: PRODUCT USED FOR UNKNOWN INDICATION
  6. FLEAMIDE [Concomitant]
     Indication: PRODUCT USED FOR UNKNOWN INDICATION
  7. OMEPRAZOLE [Concomitant]
     Indication: PRODUCT USED FOR UNKNOWN INDICATION
  8. SERTRALINE [Concomitant]
     Indication: PRODUCT USED FOR UNKNOWN INDICATION
  9. ENBREL [Concomitant]
     Indication: IMMUNOSUPPRESSANT DRUG THERAPY
     Dates: start: 20030423, end: 20090407

REACTIONS (3)
  - Diffuse large B-cell lymphoma [Unknown]
  - Pericardial effusion [Unknown]
  - Arrhythmia [Unknown]
